FAERS Safety Report 23020542 (Version 1)
Quarter: 2023Q4

REPORT INFORMATION
  Report Type: Spontaneous
  Country: US (occurrence: None)
  Receive Date: 20231002
  Receipt Date: 20231002
  Transmission Date: 20240109
  Serious: No
  Sender: FDA-Public Use
  Company Number: None

PATIENT
  Age: 60 Year
  Sex: Female
  Weight: 103.5 kg

DRUGS (9)
  1. MIRALAX [Suspect]
     Active Substance: POLYETHYLENE GLYCOL 3350
     Indication: Constipation
     Dosage: OTHER QUANTITY : 1 PACKET;?FREQUENCY : DAILY;?
     Route: 048
     Dates: start: 20231002, end: 20231002
  2. BRILINTA [Concomitant]
     Active Substance: TICAGRELOR
  3. ASPIRIN [Concomitant]
     Active Substance: ASPIRIN
  4. AMLODIPINE [Concomitant]
     Active Substance: AMLODIPINE BESYLATE
  5. CARVEDILOL [Concomitant]
     Active Substance: CARVEDILOL
  6. GLYBURIDE [Concomitant]
     Active Substance: GLYBURIDE
  7. EZETIMIBE [Concomitant]
     Active Substance: EZETIMIBE
  8. LISINOPRIL [Concomitant]
     Active Substance: LISINOPRIL
  9. FOLIC ACID [Concomitant]
     Active Substance: FOLIC ACID

REACTIONS (5)
  - Chills [None]
  - Feeling cold [None]
  - Pallor [None]
  - Vomiting [None]
  - Gastrointestinal pain [None]

NARRATIVE: CASE EVENT DATE: 20231002
